FAERS Safety Report 4877010-3 (Version None)
Quarter: 2005Q4

REPORT INFORMATION
  Report Type: 
  Country: None (occurrence: None)
  Receive Date: 20051206
  Receipt Date: 20050915
  Transmission Date: 20060501
  Serious: No
  Sender: FDA-Public Use
  Company Number: USA0509108271

PATIENT
  Age: 47 Year
  Sex: Female

DRUGS (5)
  1. CYMBALTA [Suspect]
     Indication: NEUROPATHY
     Dosage: 30 MG
     Dates: start: 20050901
  2. CORTICOSTEROID NOS [Concomitant]
  3. MORPHINE [Concomitant]
  4. ZANAFLEX [Concomitant]
  5. BACLOFEN [Concomitant]

REACTIONS (5)
  - AGITATION [None]
  - ANGER [None]
  - INSOMNIA [None]
  - THINKING ABNORMAL [None]
  - TREMOR [None]
